FAERS Safety Report 13717428 (Version 1)
Quarter: 2017Q3

REPORT INFORMATION
  Report Type: Spontaneous
  Country: JP (occurrence: JP)
  Receive Date: 20170705
  Receipt Date: 20170705
  Transmission Date: 20171127
  Serious: Yes (Other)
  Sender: FDA-Public Use
  Company Number: JP-GLAXOSMITHKLINE-JP2017103180

PATIENT
  Sex: Male

DRUGS (3)
  1. NICORETTE [Suspect]
     Active Substance: NICOTINE
     Dosage: UNK
     Route: 065
  2. NICORETTE [Suspect]
     Active Substance: NICOTINE
     Indication: SMOKING CESSATION THERAPY
     Dosage: UNK
     Route: 065
  3. NICORETTE [Suspect]
     Active Substance: NICOTINE
     Dosage: 4 DF, UNK
     Route: 065

REACTIONS (2)
  - Overdose [Unknown]
  - Nicotine dependence [Unknown]
